FAERS Safety Report 9255269 (Version 2)
Quarter: 2014Q1

REPORT INFORMATION
  Report Type: Spontaneous
  Country: US (occurrence: None)
  Receive Date: 20121212
  Receipt Date: 20130314
  Transmission Date: 20141002
  Serious: No
  Sender: FDA-Public Use
  Company Number: 1208USA011279

PATIENT
  Age: 67 Year
  Sex: Male

DRUGS (3)
  1. REBETOL [Suspect]
     Indication: HEPATITIS C
     Route: 048
     Dates: start: 20120716, end: 20121017
  2. VICTRELIS [Suspect]
     Indication: HEPATITIS C
     Route: 048
     Dates: start: 20120820, end: 20121017
  3. PEGASYS (PEGINTERFERON ALFA-2A) [Concomitant]
     Indication: HEPATITIS C

REACTIONS (4)
  - Anaemia [None]
  - Haemoglobin decreased [None]
  - Drug ineffective [None]
  - Therapeutic response decreased [None]
